FAERS Safety Report 8449943-2 (Version None)
Quarter: 2012Q2

REPORT INFORMATION
  Report Type: 
  Country: None (occurrence: None)
  Receive Date: 20120620
  Receipt Date: 20120614
  Transmission Date: 20120825
  Serious: Yes (Hospitalization)
  Sender: FDA-Public Use
  Company Number: PHHO2012DE009072

PATIENT
  Age: 33 Year
  Sex: Female
  Weight: 55 kg

DRUGS (4)
  1. MYCOPHENOLIC ACID [Suspect]
     Indication: PANCREAS TRANSPLANT
     Dosage: 720 MG, QD
     Route: 048
     Dates: start: 20111203, end: 20120119
  2. PREDNISOLONE [Suspect]
     Dosage: 20 MG, QD
     Route: 048
     Dates: start: 20111203
  3. TACROLIMUS [Suspect]
     Dosage: 6 MG, QD
     Route: 048
     Dates: start: 20111203
  4. MYCOPHENOLIC ACID [Suspect]
     Dosage: 360 MG, QD
     Route: 048
     Dates: end: 20120214

REACTIONS (3)
  - CLOSTRIDIUM COLITIS [None]
  - URINARY TRACT INFECTION [None]
  - THROMBOSIS [None]
